FAERS Safety Report 9649434 (Version 2)
Quarter: 2013Q4

REPORT INFORMATION
  Report Type: Spontaneous
  Country: US (occurrence: US)
  Receive Date: 20131028
  Receipt Date: 20131206
  Transmission Date: 20140711
  Serious: Yes (Hospitalization)
  Sender: FDA-Public Use
  Company Number: US-009507513-1310USA011922

PATIENT
  Age: 54 Year
  Sex: Male

DRUGS (3)
  1. ELAVIL (MADE BY MERCK, MARKETED BY ZENECA) [Suspect]
     Route: 048
  2. DIPHENHYDRAMINE HYDROCHLORIDE [Suspect]
  3. APAP [Suspect]

REACTIONS (1)
  - Intentional overdose [Unknown]
